FAERS Safety Report 6553496-3 (Version None)
Quarter: 2010Q1

REPORT INFORMATION
  Report Type: 
  Country: None (occurrence: None)
  Receive Date: 20100122
  Receipt Date: 20100115
  Transmission Date: 20100710
  Serious: Yes (Hospitalization)
  Sender: FDA-Public Use
  Company Number: AX105-10-0015

PATIENT
  Age: 51 Year
  Sex: Female
  Weight: 505 kg

DRUGS (4)
  1. ABRAXANE [Suspect]
     Indication: NEOPLASM
     Dosage: (146 MG)
     Dates: start: 20091123
  2. VANDETANIB [Suspect]
     Indication: NEOPLASM
     Dosage: (300 MG)
     Dates: start: 20091123
  3. METFORMIN HCL [Concomitant]
  4. PROCHLORPERAZINE MALEATE [Concomitant]

REACTIONS (3)
  - BLOOD PRESSURE INCREASED [None]
  - ENTEROCUTANEOUS FISTULA [None]
  - POST PROCEDURAL COMPLICATION [None]
